FAERS Safety Report 8029487-2 (Version None)
Quarter: 2012Q1

REPORT INFORMATION
  Report Type: 
  Country: None (occurrence: None)
  Receive Date: 20120109
  Receipt Date: 20120104
  Transmission Date: 20120608
  Serious: Yes (Hospitalization)
  Sender: FDA-Public Use
  Company Number: FR-BRISTOL-MYERS SQUIBB COMPANY-16328676

PATIENT
  Age: 66 Year
  Sex: Female

DRUGS (1)
  1. SPRYCEL [Suspect]
     Indication: CHRONIC MYELOID LEUKAEMIA
     Dosage: INTERU ON 19OCT11 AND SPRYCEL 70 MG IS REINTRODUCED COATED TABLET
     Dates: start: 20110321, end: 20110101

REACTIONS (2)
  - PLEURAL EFFUSION [None]
  - CARDIAC DISORDER [None]
